FAERS Safety Report 21676485 (Version 2)
Quarter: 2022Q4

REPORT INFORMATION
  Report Type: Spontaneous
  Country: NO (occurrence: NO)
  Receive Date: 20221202
  Receipt Date: 20221207
  Transmission Date: 20230113
  Serious: Yes (Other)
  Sender: FDA-Public Use
  Company Number: NO-MALLINCKRODT-T202206259

PATIENT
  Age: 62 Year
  Sex: Male

DRUGS (7)
  1. UVADEX [Suspect]
     Active Substance: METHOXSALEN
     Indication: Chronic graft versus host disease
     Dosage: 2.4 MILLILITER, EVERY OTHER WK , (EXTRACORPOREAL)
     Route: 050
     Dates: start: 20220927
  2. CITRATE [Concomitant]
     Active Substance: CITRIC ACID MONOHYDRATE
     Indication: Anticoagulant therapy
     Dosage: UNK, A/C RATIO: 12:1
     Route: 065
  3. RUXOLITINIB [Concomitant]
     Active Substance: RUXOLITINIB
     Indication: Product used for unknown indication
     Dosage: UNK
     Route: 065
  4. BACTRIM [Concomitant]
     Active Substance: SULFAMETHOXAZOLE\TRIMETHOPRIM
     Indication: Product used for unknown indication
     Dosage: UNK
     Route: 065
  5. ACYCLOVIR [Concomitant]
     Active Substance: ACYCLOVIR
     Indication: Product used for unknown indication
     Dosage: UNK
     Route: 065
  6. PANTOPRAZOLE SODIUM [Concomitant]
     Active Substance: PANTOPRAZOLE SODIUM
     Indication: Product used for unknown indication
     Dosage: UNK
     Route: 065
  7. OCULAC [Concomitant]
     Indication: Product used for unknown indication
     Dosage: UNK
     Route: 047

REACTIONS (8)
  - Syncope [Recovered/Resolved]
  - Malaise [Recovered/Resolved]
  - Skin warm [Recovered/Resolved]
  - Cold sweat [Recovered/Resolved]
  - Pallor [Recovered/Resolved]
  - Tachypnoea [Recovered/Resolved]
  - Nausea [Recovered/Resolved]
  - Product use in unapproved indication [Unknown]

NARRATIVE: CASE EVENT DATE: 20220927
